FAERS Safety Report 5706921-1 (Version None)
Quarter: 2008Q2

REPORT INFORMATION
  Report Type: 
  Country: None (occurrence: None)
  Receive Date: 20080416
  Receipt Date: 20080410
  Transmission Date: 20081010
  Serious: Yes (Other)
  Sender: FDA-Public Use
  Company Number: JP-AVENTIS-200811184JP

PATIENT
  Age: 79 Year
  Sex: Male

DRUGS (9)
  1. LANTUS [Suspect]
     Indication: DIABETES MELLITUS
     Dosage: DOSE: 6 UNITS/DAY
     Route: 058
  2. AMARYL [Concomitant]
  3. MELBIN                             /00082702/ [Concomitant]
  4. GLUCOBAY [Concomitant]
  5. ATELEC [Concomitant]
  6. ASPIRIN [Concomitant]
  7. CARDENALIN [Concomitant]
  8. METHYCOBAL                         /00056201/ [Concomitant]
  9. ULCERLMIN [Concomitant]

REACTIONS (1)
  - CONFUSIONAL STATE [None]
